FAERS Safety Report 7768170-5 (Version None)
Quarter: 2011Q3

REPORT INFORMATION
  Report Type: 
  Country: None (occurrence: None)
  Receive Date: 20110922
  Receipt Date: 20110922
  Transmission Date: 20111222
  Serious: Yes (Other)
  Sender: FDA-Public Use
  Company Number: None

PATIENT
  Age: 36 Year
  Sex: Male
  Weight: 86.182 kg

DRUGS (2)
  1. PRILOSEC [Suspect]
     Indication: GASTROOESOPHAGEAL REFLUX DISEASE
     Dosage: 20
     Route: 048
     Dates: start: 20110701, end: 20110916
  2. PREVACID [Concomitant]
     Indication: GASTROOESOPHAGEAL REFLUX DISEASE
     Dosage: 20
     Route: 048
     Dates: start: 20100901, end: 20110701

REACTIONS (3)
  - MUSCLE TWITCHING [None]
  - MUSCLE SPASMS [None]
  - PARAESTHESIA [None]
